FAERS Safety Report 21204083 (Version 2)
Quarter: 2022Q3

REPORT INFORMATION
  Report Type: Spontaneous
  Country: US (occurrence: None)
  Receive Date: 20220812
  Receipt Date: 20220920
  Transmission Date: 20221027
  Serious: No
  Sender: FDA-Public Use
  Company Number: 2022A272874

PATIENT

DRUGS (1)
  1. BREZTRI [Suspect]
     Active Substance: BUDESONIDE\FORMOTEROL\GLYCOPYRROLATE
     Dosage: UNKNOWN
     Route: 055

REACTIONS (5)
  - Complication associated with device [Unknown]
  - Product dose omission issue [Unknown]
  - Device use issue [Unknown]
  - Product quality issue [Unknown]
  - Device malfunction [Unknown]
